FAERS Safety Report 8584710-0 (Version None)
Quarter: 2012Q3

REPORT INFORMATION
  Report Type: 
  Country: None (occurrence: None)
  Receive Date: 20120810
  Receipt Date: 20120731
  Transmission Date: 20120928
  Serious: Yes (Hospitalization, Other)
  Sender: FDA-Public Use
  Company Number: US-BAYER-2012-078683

PATIENT
  Age: 43 Year
  Sex: Female

DRUGS (3)
  1. YAZ [Suspect]
     Dosage: UNK
     Dates: end: 20090702
  2. HYDROCODONE BITARTRATE AND ACETAMINOPHEN [Concomitant]
     Dosage: 5/500 MG, UNK
     Dates: start: 20090620
  3. ADVIL [Concomitant]
     Dosage: 2 TO 3 DAILY
     Dates: start: 20090701

REACTIONS (3)
  - PULMONARY INFARCTION [None]
  - PULMONARY EMBOLISM [None]
  - DEEP VEIN THROMBOSIS [None]
